FAERS Safety Report 19056511 (Version 1)
Quarter: 2021Q1

REPORT INFORMATION
  Report Type: Report from Study
  Country: US (occurrence: US)
  Receive Date: 20210325
  Receipt Date: 20210325
  Transmission Date: 20210420
  Serious: Yes (Hospitalization, Congenital Anomaly, Other)
  Sender: FDA-Public Use
  Company Number: US-MYLANLABS-2016M1005777

PATIENT

DRUGS (3)
  1. INDOMETACIN [Suspect]
     Active Substance: INDOMETHACIN
     Dosage: 25 MILLIGRAM, QID(INDOMETACIN SCHEDULED TO ADMINISTERED UPTO 32 WEEKS OF GA)
     Route: 064
  2. INDOMETACIN [Suspect]
     Active Substance: INDOMETHACIN
     Dosage: 50 MILLIGRAM QID(FOR UP TO 48H)
     Route: 064
  3. INDOMETACIN [Suspect]
     Active Substance: INDOMETHACIN
     Indication: SHORTENED CERVIX
     Dosage: 100 MILLIGRAM (THERAPY INITIATED AT GESTATIONAL AGE2:3.5 WEEKS;LOADING DOSE)
     Route: 064

REACTIONS (4)
  - Oligohydramnios [Unknown]
  - Foetal exposure during pregnancy [Recovered/Resolved]
  - Neonatal respiratory distress syndrome [Recovered/Resolved]
  - Ductus arteriosus stenosis foetal [Unknown]
